FAERS Safety Report 15567473 (Version 1)
Quarter: 2018Q4

REPORT INFORMATION
  Report Type: Spontaneous
  Country: FR (occurrence: FR)
  Receive Date: 20181030
  Receipt Date: 20181030
  Transmission Date: 20190205
  Serious: Yes (Other)
  Sender: FDA-Public Use
  Company Number: FR-ALVOGEN-2018-ALVOGEN-097685

PATIENT
  Age: 66 Year
  Sex: Male

DRUGS (4)
  1. GLIVEC [Suspect]
     Active Substance: IMATINIB MESYLATE
     Indication: CHRONIC MYELOID LEUKAEMIA
     Route: 065
     Dates: start: 2009
  2. ATENOLOL. [Suspect]
     Active Substance: ATENOLOL
     Indication: ATRIAL FIBRILLATION
     Route: 048
     Dates: start: 201808
  3. XARELTO [Suspect]
     Active Substance: RIVAROXABAN
     Indication: ATRIAL FIBRILLATION
     Route: 065
     Dates: start: 201808
  4. CARBIMAZOLE [Suspect]
     Active Substance: CARBIMAZOLE
     Indication: BASEDOW^S DISEASE
     Route: 065
     Dates: start: 201808, end: 201809

REACTIONS (4)
  - Lymphoedema [Unknown]
  - Atrial fibrillation [Unknown]
  - Eyelid oedema [Unknown]
  - Basedow^s disease [Unknown]

NARRATIVE: CASE EVENT DATE: 201808
